FAERS Safety Report 9999021 (Version 1)
Quarter: 2014Q1

REPORT INFORMATION
  Report Type: Spontaneous
  Country: US (occurrence: None)
  Receive Date: 20140311
  Receipt Date: 20140311
  Transmission Date: 20141002
  Serious: Yes (Hospitalization)
  Sender: FDA-Public Use
  Company Number: None

PATIENT
  Age: 70 Year
  Sex: Male

DRUGS (20)
  1. XARELTO [Suspect]
     Indication: DEEP VEIN THROMBOSIS
     Dosage: 1 TABLET BID ORAL
     Route: 048
     Dates: start: 20140306, end: 20140309
  2. ACETAZOLAMIDE [Concomitant]
  3. CALCIUM WITH VIT D [Concomitant]
  4. CELECOXIB [Concomitant]
  5. COLCHICINE [Concomitant]
  6. DIAZEPAM [Concomitant]
  7. DULOXETINE [Concomitant]
  8. FEBUXOSTAT [Concomitant]
  9. FERROUS SULFATE [Concomitant]
  10. FUROSEMIDE [Concomitant]
  11. GUAIFENESIN [Concomitant]
  12. HYDROXYZINE [Concomitant]
  13. ISOSORBIDE MONONITRATE [Concomitant]
  14. LINEZOLID [Concomitant]
  15. MEROPENEM [Concomitant]
  16. PHENAZOPYRIDINE [Concomitant]
  17. KCL [Concomitant]
  18. PREGABALIN [Concomitant]
  19. ROPINIROLE [Concomitant]
  20. TOLTERODINE [Concomitant]

REACTIONS (1)
  - Haematuria [None]
